FAERS Safety Report 24719356 (Version 1)
Quarter: 2024Q4

REPORT INFORMATION
  Report Type: Spontaneous
  Country: IN (occurrence: IN)
  Receive Date: 20241210
  Receipt Date: 20241210
  Transmission Date: 20250114
  Serious: Yes (Hospitalization, Other)
  Sender: Steriscience PTE
  Company Number: IN-STERISCIENCE B.V.-2024-ST-002081

PATIENT
  Age: 28 Year
  Sex: Female

DRUGS (1)
  1. LABETALOL [Suspect]
     Active Substance: LABETALOL
     Indication: Gestational hypertension
     Dosage: UNK
     Route: 065

REACTIONS (5)
  - Stillbirth [Unknown]
  - Premature separation of placenta [Unknown]
  - Drug ineffective [Unknown]
  - Treatment noncompliance [Unknown]
  - Maternal exposure during pregnancy [Unknown]
